FAERS Safety Report 25589777 (Version 2)
Quarter: 2025Q3

REPORT INFORMATION
  Report Type: Report from Study
  Country: MY (occurrence: MY)
  Receive Date: 20250722
  Receipt Date: 20250722
  Transmission Date: 20251020
  Serious: Yes (Other)
  Sender: MERCK SHARP & DOHME LLC
  Company Number: MY-009507513-2257591

PATIENT
  Age: 45 Year
  Sex: Female

DRUGS (1)
  1. KEYTRUDA [Suspect]
     Active Substance: PEMBROLIZUMAB
     Dates: start: 20250121, end: 20250205

REACTIONS (7)
  - Radiotherapy [Unknown]
  - Inappropriate schedule of product administration [Unknown]
  - Off label use [Unknown]
  - Tremor [Unknown]
  - Hypoaesthesia [Unknown]
  - Chest discomfort [Unknown]
  - Economic problem [Unknown]

NARRATIVE: CASE EVENT DATE: 20250101
